FAERS Safety Report 7731772-6 (Version None)
Quarter: 2011Q3

REPORT INFORMATION
  Report Type: 
  Country: None (occurrence: None)
  Receive Date: 20110906
  Receipt Date: 20110629
  Transmission Date: 20111222
  Serious: No
  Sender: FDA-Public Use
  Company Number: US-AMGEN-USASP2011033279

PATIENT
  Age: 76 Year
  Sex: Female

DRUGS (3)
  1. PROLIA [Suspect]
     Indication: BONE DENSITY ABNORMAL
     Dosage: UNK
     Dates: start: 20110617
  2. OCUVITE                            /01053801/ [Concomitant]
  3. CALCIUM WITH VITAMIN D             /00944201/ [Concomitant]

REACTIONS (2)
  - BLISTER [None]
  - RASH GENERALISED [None]
